FAERS Safety Report 21280498 (Version 1)
Quarter: 2022Q3

REPORT INFORMATION
  Report Type: Spontaneous
  Country: US (occurrence: None)
  Receive Date: 20220901
  Receipt Date: 20220901
  Transmission Date: 20221027
  Serious: Yes (Hospitalization, Disabling)
  Sender: FDA-Public Use
  Company Number: None

PATIENT
  Age: 56 Year
  Sex: Female
  Weight: 58.5 kg

DRUGS (4)
  1. DEXAMETHASONE [Suspect]
     Active Substance: DEXAMETHASONE
     Indication: Back pain
     Dosage: OTHER QUANTITY : 1 INJECTION(S);?OTHER FREQUENCY : ONE TIME;?
     Route: 008
  2. DEXAMETHASONE [Suspect]
     Active Substance: DEXAMETHASONE
     Indication: Hypoaesthesia
  3. DEXAMETHASONE [Suspect]
     Active Substance: DEXAMETHASONE
     Indication: Infection
  4. CIPRO [Suspect]
     Active Substance: CIPROFLOXACIN HYDROCHLORIDE
     Indication: Infection
     Dosage: OTHER QUANTITY : 1 TABLET(S);?FREQUENCY : EVERY 6 HOURS;?
     Route: 048

REACTIONS (6)
  - Cognitive disorder [None]
  - Dry eye [None]
  - Blepharitis [None]
  - Meibomian gland dysfunction [None]
  - Unevaluable event [None]
  - Loss of personal independence in daily activities [None]

NARRATIVE: CASE EVENT DATE: 20201208
